FAERS Safety Report 14333496 (Version 1)
Quarter: 2017Q4

REPORT INFORMATION
  Report Type: Spontaneous
  Country: CH (occurrence: CH)
  Receive Date: 20171228
  Receipt Date: 20171228
  Transmission Date: 20180321
  Serious: Yes (Other)
  Sender: FDA-Public Use
  Company Number: CH-GALDERMA-CH17013422

PATIENT
  Age: 31 Year
  Sex: Female

DRUGS (3)
  1. EUTHYROX [Suspect]
     Active Substance: LEVOTHYROXINE SODIUM
     Indication: PRODUCT USED FOR UNKNOWN INDICATION
     Dosage: 100-125MG
     Route: 048
     Dates: start: 2011
  2. DOXYCLINE [Suspect]
     Active Substance: DOXYCYCLINE
     Indication: ACNE
     Route: 048
     Dates: start: 20171117, end: 20171202
  3. SOOLANTRA [Suspect]
     Active Substance: IVERMECTIN
     Indication: ACNE
     Dosage: 10MG/1G
     Route: 061
     Dates: start: 20171117, end: 20171117

REACTIONS (2)
  - Exposure during pregnancy [Unknown]
  - Product use in unapproved indication [Recovered/Resolved]

NARRATIVE: CASE EVENT DATE: 20171110
